FAERS Safety Report 12246374 (Version 1)
Quarter: 2016Q2

REPORT INFORMATION
  Report Type: Spontaneous
  Country: US (occurrence: US)
  Receive Date: 20160407
  Receipt Date: 20160407
  Transmission Date: 20160815
  Serious: Yes (Other)
  Sender: FDA-Public Use
  Company Number: US-BAYER-2016-065934

PATIENT
  Sex: Female

DRUGS (1)
  1. MIRENA [Suspect]
     Active Substance: LEVONORGESTREL
     Indication: CONTRACEPTION
     Dosage: 52 MCG/24HR, CONT
     Route: 015
     Dates: start: 2011

REACTIONS (11)
  - Dizziness [None]
  - Cold sweat [None]
  - Weight decreased [None]
  - Hormone level abnormal [None]
  - Complication of device insertion [None]
  - Product use issue [None]
  - Dizziness [None]
  - Vertigo [None]
  - Hyperthyroidism [None]
  - Incorrect dose administered by device [None]
  - Post procedural discomfort [None]

NARRATIVE: CASE EVENT DATE: 2011
